FAERS Safety Report 7546024 (Version 4)
Quarter: 2013Q2

REPORT INFORMATION
  Report Type: Spontaneous
  Country: MX (occurrence: MX)
  Receive Date: 20100818
  Receipt Date: 20130423
  Transmission Date: 20140414
  Serious: Yes (Hospitalization)
  Sender: FDA-Public Use
  Company Number: PHHY2010MX51231

PATIENT
  Age: 26 Year
  Sex: Female

DRUGS (2)
  1. TRILEPTAL [Suspect]
     Indication: EPILEPSY
     Dosage: 5 DF, QD
     Route: 048
     Dates: start: 2008
  2. TRILEPTAL [Suspect]
     Dosage: 4 TABLETS PER DAY (300 MG)
     Route: 048
     Dates: end: 201105

REACTIONS (2)
  - Movement disorder [Recovered/Resolved]
  - Convulsion [Not Recovered/Not Resolved]
